FAERS Safety Report 4607674-0 (Version None)
Quarter: 2005Q1

REPORT INFORMATION
  Report Type: 
  Country: None (occurrence: None)
  Receive Date: 20050309
  Receipt Date: 20050227
  Transmission Date: 20050727
  Serious: Yes (Disabling)
  Sender: FDA-Public Use
  Company Number: 05H-056-0292445-00

PATIENT
  Age: 30 Year
  Sex: Female

DRUGS (2)
  1. MARCAINE HCL W/ EPINEPHRINE [Suspect]
     Indication: ANALGESIC EFFECT
     Dosage: 20 ML, EPIDURAL
     Route: 008
  2. XYLOCAINE W/ EPINEPHRINE [Suspect]
     Indication: POSTOPERATIVE ANALGESIA
     Dosage: 1% 10 ML, FIVE TIMES

REACTIONS (14)
  - ARACHNOID CYST [None]
  - ARACHNOIDITIS [None]
  - CYST [None]
  - DRUG EXPOSURE DURING PREGNANCY [None]
  - ELECTRIC SHOCK [None]
  - GAIT DISTURBANCE [None]
  - LIPOHYPERTROPHY [None]
  - OBSTETRIC PROCEDURE COMPLICATION [None]
  - PAIN [None]
  - PARAPARESIS [None]
  - RESTLESS LEGS SYNDROME [None]
  - SENSORY LOSS [None]
  - SPINAL DEFORMITY [None]
  - URINARY INCONTINENCE [None]
